FAERS Safety Report 9425439 (Version 3)
Quarter: 2013Q3

REPORT INFORMATION
  Report Type: Report from Study
  Country: CA (occurrence: CA)
  Receive Date: 20130729
  Receipt Date: 20130903
  Transmission Date: 20140515
  Serious: Yes (Other)
  Sender: FDA-Public Use
  Company Number: CA-ABBOTT-13P-028-1088442-00

PATIENT
  Sex: Female

DRUGS (4)
  1. HUMIRA [Suspect]
     Indication: RHEUMATOID ARTHRITIS
     Route: 058
     Dates: start: 20091105, end: 20130418
  2. HUMIRA [Suspect]
     Route: 058
     Dates: start: 20130612
  3. HUMIRA [Suspect]
     Route: 058
     Dates: start: 20130719
  4. AZITHROMYCIN [Concomitant]
     Indication: EYE INFECTION
     Route: 061
     Dates: start: 20130502

REACTIONS (5)
  - Foreign body in eye [Recovering/Resolving]
  - Eye infection [Recovered/Resolved]
  - Cataract [Recovering/Resolving]
  - Lens disorder [Recovering/Resolving]
  - Cataract [Unknown]
